FAERS Safety Report 6237319-8 (Version None)
Quarter: 2009Q2

REPORT INFORMATION
  Report Type: 
  Country: None (occurrence: None)
  Receive Date: 20090619
  Receipt Date: 20090507
  Transmission Date: 20091009
  Serious: Yes (Other)
  Sender: FDA-Public Use
  Company Number: US-GENENTECH-285140

PATIENT
  Age: 57 Year
  Sex: Male

DRUGS (7)
  1. RITUXIMAB [Suspect]
     Indication: EYE INFLAMMATION
     Dosage: 1 G, 1/WEEK
     Route: 042
  2. MYCOPHENOLATE MOFETIL [Suspect]
     Indication: SCLERITIS
     Route: 065
  3. AZATHIOPRINE [Suspect]
     Indication: SCLERITIS
     Route: 065
  4. PREDNISONE [Suspect]
     Indication: SCLERITIS
     Dosage: 13 MG, UNK
     Route: 065
  5. DIPHENHYDRAMINE HCL [Concomitant]
     Indication: DRUG USE FOR UNKNOWN INDICATION
  6. ACETAMINOPHEN [Concomitant]
     Indication: DRUG USE FOR UNKNOWN INDICATION
  7. METHYLPREDNISOLONE [Concomitant]
     Indication: DRUG USE FOR UNKNOWN INDICATION

REACTIONS (4)
  - ANXIETY [None]
  - DRUG INEFFECTIVE [None]
  - PRURITUS [None]
  - SCLERITIS [None]
